FAERS Safety Report 4389434-1 (Version None)
Quarter: 2004Q2

REPORT INFORMATION
  Report Type: 
  Country: None (occurrence: None)
  Receive Date: 20040630
  Receipt Date: 20040618
  Transmission Date: 20050107
  Serious: Yes (Hospitalization)
  Sender: FDA-Public Use
  Company Number: GB-JNJFOC-20040604682

PATIENT
  Age: 68 Year
  Sex: Female

DRUGS (11)
  1. REMICADE [Suspect]
     Indication: RHEUMATOID ARTHRITIS
     Dosage: 183 MG INTRAVENOUS
     Route: 042
     Dates: start: 20030123
  2. METHOTREXATE [Concomitant]
  3. FOLIC ACID [Concomitant]
  4. PREDNISOLONE [Concomitant]
  5. CO-PROXAMOL (APOREX) [Concomitant]
  6. LOSEC (OMEPRAZOLE) [Concomitant]
  7. DIHYDROCODEINE (DIHYDROCODEINE) [Concomitant]
  8. AMITRIPTYLINE HCL [Concomitant]
  9. DIDRONEL [Concomitant]
  10. THYROXINE (LEVOTHYROXINE SODIUM) [Concomitant]
  11. FROBEN (FLURBIPROFEN) [Concomitant]

REACTIONS (2)
  - FEMUR FRACTURE [None]
  - KNEE ARTHROPLASTY [None]
